FAERS Safety Report 10023963 (Version 2)
Quarter: 2014Q1

REPORT INFORMATION
  Report Type: Spontaneous
  Country: US (occurrence: None)
  Receive Date: 20140318
  Receipt Date: 20140327
  Transmission Date: 20141002
  Serious: Yes (Hospitalization)
  Sender: FDA-Public Use
  Company Number: 2014-US-002879

PATIENT
  Age: 9 Year
  Sex: Male

DRUGS (5)
  1. XYREM [Suspect]
     Indication: NARCOLEPSY
     Route: 048
     Dates: start: 201311, end: 2013
  2. XYREM [Suspect]
     Indication: CATAPLEXY
     Route: 048
     Dates: start: 201311, end: 2013
  3. CONCERTA (METHYLPHENIDATE HYDROCHLORIDE) [Concomitant]
  4. CLONIDINE (CLONIDINE HYDROCHLORIDE) [Concomitant]
  5. SERTRALINE (SERTRALINE HYDROCHLORIDE) [Concomitant]

REACTIONS (2)
  - Abnormal behaviour [None]
  - Aggression [None]
